FAERS Safety Report 17007997 (Version 1)
Quarter: 2019Q4

REPORT INFORMATION
  Report Type: Spontaneous
  Country: GB (occurrence: GB)
  Receive Date: 20191108
  Receipt Date: 20191108
  Transmission Date: 20200122
  Serious: Yes (Hospitalization)
  Sender: FDA-Public Use
  Company Number: GB-ASTRAZENECA-2019SF55058

PATIENT
  Age: 83 Year
  Sex: Female

DRUGS (15)
  1. BECLOMETASONE [Concomitant]
     Active Substance: BECLOMETHASONE DIPROPIONATE
     Dosage: 50.0UG/INHAL UNKNOWN
     Route: 045
  2. OMEPRAZOLE. [Suspect]
     Active Substance: OMEPRAZOLE
     Dosage: IN THE MORNING.
     Route: 048
     Dates: end: 20180731
  3. MOVICOL [Concomitant]
     Active Substance: POLYETHYLENE GLYCOL 3350\POTASSIUM CHLORIDE\SODIUM BICARBONATE\SODIUM CHLORIDE
     Dosage: 13.8G UNKNOWN
     Route: 048
  4. SIMVASTATIN. [Concomitant]
     Active Substance: SIMVASTATIN
     Dosage: 20.0MG UNKNOWN
  5. ADCAL-D3 [Concomitant]
     Active Substance: CALCIUM CARBONATE\CHOLECALCIFEROL
  6. FUROSEMIDE. [Suspect]
     Active Substance: FUROSEMIDE
     Dosage: IN THE MORNING.
     Route: 048
     Dates: start: 20180710, end: 20180731
  7. OILATUM PLUS [Concomitant]
  8. FOLIC ACID. [Concomitant]
     Active Substance: FOLIC ACID
     Dosage: 5.0MG UNKNOWN
  9. CASSIA [Concomitant]
     Dosage: 7.5MG UNKNOWN
  10. BISOPROLOL [Concomitant]
     Active Substance: BISOPROLOL
     Dosage: 5.0MG UNKNOWN
  11. PARACETAMOL [Concomitant]
     Active Substance: ACETAMINOPHEN
     Dosage: 500.0MG UNKNOWN
  12. DESLORATADINE. [Concomitant]
     Active Substance: DESLORATADINE
     Dosage: 5.0MG UNKNOWN
  13. FERROUS SULFATE. [Concomitant]
     Active Substance: FERROUS SULFATE
     Dosage: 200.0MG UNKNOWN
  14. DOUBLEBASE [Concomitant]
     Active Substance: ISOPROPYL MYRISTATE\PARAFFIN
  15. CODEINE [Concomitant]
     Active Substance: CODEINE
     Dosage: 30.0MG UNKNOWN

REACTIONS (2)
  - Acute kidney injury [Recovering/Resolving]
  - Hyponatraemia [Recovering/Resolving]

NARRATIVE: CASE EVENT DATE: 20180731
